FAERS Safety Report 7265255-7 (Version None)
Quarter: 2011Q1

REPORT INFORMATION
  Report Type: 
  Country: None (occurrence: None)
  Receive Date: 20110131
  Receipt Date: 20110125
  Transmission Date: 20110831
  Serious: Yes (Hospitalization)
  Sender: FDA-Public Use
  Company Number: JP-PFIZER INC-2010172165

PATIENT
  Age: 71 Year
  Sex: Female
  Weight: 52 kg

DRUGS (13)
  1. MEDROL [Suspect]
     Indication: COLITIS ULCERATIVE
     Dosage: 24 MG, 3X/DAY
     Route: 048
     Dates: start: 20090131, end: 20090213
  2. GASTER [Concomitant]
     Dosage: UNK
  3. SOLU-MEDROL [Suspect]
     Indication: COLITIS ULCERATIVE
     Dosage: 40 MG, 1X/DAY
     Route: 042
     Dates: start: 20090114, end: 20090118
  4. MEDROL [Suspect]
     Dosage: 20 MG, 3X/DAY
     Route: 048
     Dates: start: 20090214, end: 20090220
  5. MEDROL [Suspect]
     Dosage: 6 MG, 2X/DAY
     Route: 048
     Dates: start: 20090404, end: 20090417
  6. PREDNISOLONE [Suspect]
     Indication: COLITIS ULCERATIVE
     Dosage: 15 MG, 1X/DAY
     Route: 048
  7. SOLU-MEDROL [Suspect]
     Dosage: 40 MG, 1X/DAY
     Route: 042
     Dates: start: 20090430, end: 20090502
  8. MEDROL [Suspect]
     Dosage: 16 MG, 3X/DAY
     Route: 048
     Dates: start: 20090221, end: 20090227
  9. SOLU-MEDROL [Suspect]
     Dosage: 40 MG, 1X/DAY
     Route: 042
     Dates: start: 20090124, end: 20090130
  10. SALICYLAZOSULFAPYRIDINE [Concomitant]
     Indication: COLITIS ULCERATIVE
     Dosage: 4500 MG, 1X/DAY
     Route: 048
  11. MEDROL [Suspect]
     Dosage: 12 MG, 2X/DAY
     Route: 048
     Dates: start: 20090228, end: 20090306
  12. MEDROL [Suspect]
     Dosage: 8 MG, 2X/DAY
     Route: 048
     Dates: start: 20090307, end: 20090403
  13. MESALAZINE [Concomitant]
     Dosage: UNK

REACTIONS (3)
  - HEPATITIS B [None]
  - COLITIS ULCERATIVE [None]
  - DISEASE RECURRENCE [None]
